FAERS Safety Report 6863265-2 (Version None)
Quarter: 2010Q3

REPORT INFORMATION
  Report Type: 
  Country: None (occurrence: None)
  Receive Date: 20100721
  Receipt Date: 20100701
  Transmission Date: 20110219
  Serious: Yes (Other)
  Sender: FDA-Public Use
  Company Number: PHHY2010MX46221

PATIENT
  Sex: Female

DRUGS (1)
  1. DIOVAN HCT [Suspect]
     Indication: HYPERTENSION
     Dosage: 160/25 MG (1 TABLET DAILY)
     Route: 048
     Dates: end: 20100601

REACTIONS (2)
  - CARDIAC FAILURE [None]
  - FLUID RETENTION [None]
